FAERS Safety Report 6047984-6 (Version None)
Quarter: 2009Q1

REPORT INFORMATION
  Report Type: 
  Country: None (occurrence: None)
  Receive Date: 20090123
  Receipt Date: 20090114
  Transmission Date: 20090719
  Serious: Yes (Hospitalization)
  Sender: FDA-Public Use
  Company Number: PHHY2009PT01480

PATIENT
  Age: 65 Year
  Sex: Female

DRUGS (2)
  1. FORADIL [Suspect]
     Indication: EMPHYSEMA
     Dosage: 12 INHALATIONS/DAY
  2. FLIXOTAIDE [Suspect]
     Indication: EMPHYSEMA
     Dosage: 12 INHALATIONS/DAY

REACTIONS (1)
  - EPISTAXIS [None]
